FAERS Safety Report 10388515 (Version 8)
Quarter: 2014Q4

REPORT INFORMATION
  Report Type: Report from Study
  Country: US (occurrence: US)
  Receive Date: 20140815
  Receipt Date: 20141218
  Transmission Date: 20150528
  Serious: Yes (Death, Hospitalization)
  Sender: FDA-Public Use
  Company Number: US-ACTELION-A-NJ2012-72300

PATIENT
  Age: 74 Year
  Sex: Female

DRUGS (4)
  1. SILDENAFIL. [Concomitant]
     Active Substance: SILDENAFIL
  2. TREPROSTINIL [Concomitant]
     Active Substance: TREPROSTINIL
  3. ASPIRIN. [Concomitant]
     Active Substance: ASPIRIN
  4. TRACLEER [Suspect]
     Active Substance: BOSENTAN\BOSENTAN MONOHYDRATE
     Indication: PULMONARY ARTERIAL HYPERTENSION
     Dosage: 125 MG, BID
     Route: 048
     Dates: start: 20090411, end: 20141119

REACTIONS (8)
  - Epistaxis [Unknown]
  - Dyspnoea [Unknown]
  - Oedema peripheral [Unknown]
  - Right ventricular failure [Recovering/Resolving]
  - Fluid imbalance [Unknown]
  - Cardiac failure congestive [Fatal]
  - Pulmonary hypertension [Fatal]
  - Fluid retention [Unknown]

NARRATIVE: CASE EVENT DATE: 20120820
